FAERS Safety Report 6609842-5 (Version None)
Quarter: 2010Q1

REPORT INFORMATION
  Report Type: 
  Country: None (occurrence: None)
  Receive Date: 20100302
  Receipt Date: 20100217
  Transmission Date: 20100710
  Serious: Yes (Other)
  Sender: FDA-Public Use
  Company Number: PHHY2010GB00808

PATIENT
  Sex: Male

DRUGS (3)
  1. CLOZARIL [Suspect]
     Indication: SCHIZOPHRENIA
     Dosage: UNK
     Dates: start: 19980216, end: 20100119
  2. MIXTARD HUMAN 70/30 [Concomitant]
     Indication: DIABETES MELLITUS
     Dosage: 300 U, BID
  3. ASPIRIN [Concomitant]
     Dosage: 75 MG DAILY

REACTIONS (4)
  - GENERAL PHYSICAL HEALTH DETERIORATION [None]
  - PLATELET COUNT INCREASED [None]
  - RENAL FAILURE [None]
  - SEPSIS [None]
